FAERS Safety Report 7454452-3 (Version None)
Quarter: 2011Q2

REPORT INFORMATION
  Report Type: 
  Country: None (occurrence: None)
  Receive Date: 20110425
  Receipt Date: 20110408
  Transmission Date: 20111010
  Serious: Yes (Hospitalization)
  Sender: FDA-Public Use
  Company Number: AUR-APL-2011-01244

PATIENT
  Age: 72 Year
  Sex: Male

DRUGS (18)
  1. PREDNISOLONE [Concomitant]
  2. OMEPRAZOL [Concomitant]
  3. SANDIMMUNE [Suspect]
     Indication: RENAL TRANSPLANT
     Dosage: 100 MG - DAILY - ORAL
     Route: 048
     Dates: start: 20091103
  4. COSOPT [Concomitant]
  5. FURIX [Concomitant]
  6. NOVORAPID [Concomitant]
  7. AMOXICILLIN [Suspect]
     Indication: HELICOBACTER INFECTION
     Dosage: 2G - DAILY - ORAL
     Route: 048
     Dates: start: 20101229, end: 20110104
  8. SELOKIN [Concomitant]
  9. CAPTOPRIL [Concomitant]
  10. ETALPHA [Concomitant]
  11. PLENDIL [Concomitant]
  12. SIMVASTATIN [Concomitant]
  13. KALCIDON [Concomitant]
  14. WARFARIN SODIUM [Concomitant]
  15. NATRIUBIKARBONATE FRESENIUS KABI [Concomitant]
  16. ALLOPURINOL [Concomitant]
  17. CLARITHROMYCIN [Suspect]
     Dosage: 1G - DAILY - ORAL
     Route: 048
     Dates: start: 20101229, end: 20110104
  18. MAXIDEX [Concomitant]

REACTIONS (3)
  - DRUG THERAPEUTIC INCOMPATIBILITY [None]
  - RENAL FAILURE [None]
  - IMMUNOSUPPRESSANT DRUG LEVEL INCREASED [None]
